FAERS Safety Report 8043806-2 (Version None)
Quarter: 2012Q1

REPORT INFORMATION
  Report Type: 
  Country: None (occurrence: None)
  Receive Date: 20120113
  Receipt Date: 20120104
  Transmission Date: 20120608
  Serious: No
  Sender: FDA-Public Use
  Company Number: US-BIOGENIDEC-2012BI000446

PATIENT
  Age: 31 Year
  Sex: Male

DRUGS (2)
  1. TYSABRI [Suspect]
     Indication: MULTIPLE SCLEROSIS
     Route: 042
     Dates: start: 20111123
  2. TYSABRI [Suspect]
     Route: 042
     Dates: start: 20100122, end: 20110218

REACTIONS (3)
  - VISUAL IMPAIRMENT [None]
  - CONSTIPATION [None]
  - DYSURIA [None]
